FAERS Safety Report 8400097-8 (Version None)
Quarter: 2012Q2

REPORT INFORMATION
  Report Type: 
  Country: None (occurrence: None)
  Receive Date: 20120531
  Receipt Date: 20120525
  Transmission Date: 20120825
  Serious: Yes (Hospitalization, Other)
  Sender: FDA-Public Use
  Company Number: JP-PFIZER INC-2012058841

PATIENT
  Age: 89 Year
  Sex: Female
  Weight: 53 kg

DRUGS (13)
  1. LYRICA [Suspect]
     Indication: POLYMYALGIA RHEUMATICA
     Dosage: 75 MG, 2X/DAY
     Route: 048
     Dates: start: 20120215, end: 20120217
  2. MOBIC [Concomitant]
     Indication: PAIN
     Dosage: UNK
     Route: 048
  3. GLAKAY [Concomitant]
     Indication: OSTEOPOROSIS
     Dosage: 15 MG, 2X/DAY
  4. CALCIUM LACTATE [Concomitant]
     Indication: OSTEOPOROSIS
     Dosage: 1 G, 2X/DAY
     Route: 048
  5. RISEDRONATE SODIUM [Concomitant]
     Indication: OSTEOPOROSIS
     Dosage: UNK
     Route: 048
  6. PLETAL [Concomitant]
     Indication: THROMBOSIS PROPHYLAXIS
     Dosage: 50 MG, 2X/DAY
     Route: 048
  7. DIOVAN [Concomitant]
     Indication: HYPERTENSION
     Dosage: UNK
     Route: 048
  8. PREDNISOLONE [Concomitant]
     Indication: POLYMYALGIA RHEUMATICA
     Dosage: UNK
     Route: 048
  9. LANSOPRAZOLE [Concomitant]
     Indication: PROPHYLAXIS AGAINST GASTROINTESTINAL ULCER
     Dosage: UNK
     Route: 048
  10. DEPAS [Concomitant]
     Indication: ANXIETY DISORDER
     Dosage: 0.5 MG, 2X/DAY
     Route: 048
  11. ADALAT CC [Concomitant]
     Indication: HYPERTENSION
     Dosage: UNK
     Route: 048
  12. CEREKINON [Concomitant]
     Indication: ENTEROCOLITIS
     Dosage: 100 MG, 2X/DAY
     Route: 048
  13. HOKUNALIN [Concomitant]
     Indication: BRONCHITIS CHRONIC
     Dosage: UNK
     Route: 062

REACTIONS (3)
  - MUSCULAR WEAKNESS [None]
  - ABASIA [None]
  - DYSARTHRIA [None]
